FAERS Safety Report 20314953 (Version 1)
Quarter: 2022Q1

REPORT INFORMATION
  Report Type: Report from Study
  Country: BR (occurrence: BR)
  Receive Date: 20220110
  Receipt Date: 20220110
  Transmission Date: 20220423
  Serious: Yes (Other)
  Sender: FDA-Public Use
  Company Number: BR-JNJFOC-20220108752

PATIENT
  Age: 6 Decade
  Sex: Female
  Weight: 49 kg

DRUGS (1)
  1. INFLIXIMAB [Suspect]
     Active Substance: INFLIXIMAB
     Indication: Psoriatic arthropathy
     Route: 042
     Dates: start: 20190708, end: 20210305

REACTIONS (2)
  - Glaucoma [Recovering/Resolving]
  - Herpes zoster [Recovering/Resolving]
